FAERS Safety Report 8407829-3 (Version None)
Quarter: 2012Q2

REPORT INFORMATION
  Report Type: 
  Country: None (occurrence: None)
  Receive Date: 20120604
  Receipt Date: 20120601
  Transmission Date: 20120825
  Serious: Yes (Death)
  Sender: FDA-Public Use
  Company Number: PHHY2012FR047009

PATIENT
  Sex: Male

DRUGS (6)
  1. DOCETAXEL [Suspect]
     Route: 042
     Dates: start: 20120109, end: 20120205
  2. INNOHEP [Concomitant]
  3. FLUOROURACIL [Suspect]
     Route: 042
     Dates: start: 20120109, end: 20120205
  4. CISPLATIN [Suspect]
     Route: 042
     Dates: start: 20120109, end: 20120205
  5. CORDARONE [Suspect]
     Route: 048
     Dates: end: 20120127
  6. SOTALOL HCL [Concomitant]
     Dates: start: 20110505

REACTIONS (2)
  - INTERSTITIAL LUNG DISEASE [None]
  - RESPIRATORY DISTRESS [None]
